FAERS Safety Report 8253342-6 (Version None)
Quarter: 2012Q2

REPORT INFORMATION
  Report Type: 
  Country: None (occurrence: None)
  Receive Date: 20120402
  Receipt Date: 20120312
  Transmission Date: 20120825
  Serious: No
  Sender: FDA-Public Use
  Company Number: US-AMGEN-USASP2012016080

PATIENT
  Age: 52 Year
  Sex: Female

DRUGS (1)
  1. ENBREL [Suspect]
     Indication: RHEUMATOID ARTHRITIS
     Dosage: 50 MG, QWK
     Dates: start: 20110815

REACTIONS (7)
  - COUGH [None]
  - BACK PAIN [None]
  - ORAL HERPES [None]
  - ARTHRALGIA [None]
  - ESCHERICHIA URINARY TRACT INFECTION [None]
  - PAIN IN EXTREMITY [None]
  - UPPER RESPIRATORY TRACT INFECTION [None]
